FAERS Safety Report 6134219-9 (Version None)
Quarter: 2009Q1

REPORT INFORMATION
  Report Type: 
  Country: None (occurrence: None)
  Receive Date: 20090326
  Receipt Date: 20090322
  Transmission Date: 20090719
  Serious: Yes (Hospitalization)
  Sender: FDA-Public Use
  Company Number: CA-PFIZER INC-2007035723

PATIENT

DRUGS (11)
  1. ATORVASTATIN CALCIUM [Suspect]
     Route: 048
     Dates: start: 20050221, end: 20060222
  2. APO-PREDNISONE [Concomitant]
  3. STATEX [Concomitant]
  4. NOVO-LORAZEM [Concomitant]
  5. PREVACID [Concomitant]
  6. NOVO-ATENOL [Concomitant]
  7. NORVASC [Concomitant]
  8. DOMPERIDONE [Concomitant]
  9. NOVASEN [Concomitant]
  10. ATROVENT [Concomitant]
  11. SALMETEROL [Concomitant]

REACTIONS (1)
  - PNEUMONIA [None]
